FAERS Safety Report 5400294-X (Version None)
Quarter: 2007Q3

REPORT INFORMATION
  Report Type: 
  Country: None (occurrence: None)
  Receive Date: 20070727
  Receipt Date: 20070727
  Transmission Date: 20080115
  Serious: Yes (Hospitalization)
  Sender: FDA-Public Use
  Company Number: None

PATIENT
  Age: 75 Year
  Sex: Male
  Weight: 83.9154 kg

DRUGS (1)
  1. RISPERDAL [Suspect]
     Indication: DEMENTIA ALZHEIMER'S TYPE
     Dosage: 0.5 MG A.M PO 1 MG P.M PO
     Route: 048
     Dates: start: 20070707, end: 20070710

REACTIONS (5)
  - ABASIA [None]
  - DRUG HYPERSENSITIVITY [None]
  - MUSCLE RIGIDITY [None]
  - POSTURE ABNORMAL [None]
  - URINARY RETENTION [None]
